FAERS Safety Report 23983220 (Version 1)
Quarter: 2024Q2

REPORT INFORMATION
  Report Type: Spontaneous
  Country: US (occurrence: US)
  Receive Date: 20240617
  Receipt Date: 20240617
  Transmission Date: 20240715
  Serious: No
  Sender: FDA-Public Use
  Company Number: US-DRL-USA-LIT/USA/24/0008469

PATIENT
  Age: 57 Year
  Sex: Female
  Weight: 145.15 kg

DRUGS (4)
  1. TOPIRAMATE [Suspect]
     Active Substance: TOPIRAMATE
     Indication: Nephrolithiasis
  2. TOPIRAMATE [Suspect]
     Active Substance: TOPIRAMATE
  3. SODIUM BICARBONATE [Concomitant]
     Active Substance: SODIUM BICARBONATE
     Indication: Nephrolithiasis
     Dosage: TO LOW DOSE SODIUM BICARBONATE (1300 MG BID)
     Dates: start: 2013
  4. SODIUM BICARBONATE [Concomitant]
     Active Substance: SODIUM BICARBONATE
     Dosage: INCREASE

REACTIONS (5)
  - Brain fog [Unknown]
  - Product use in unapproved indication [Unknown]
  - Treatment noncompliance [Unknown]
  - Product substitution issue [Unknown]
  - Rebound effect [Unknown]
